FAERS Safety Report 7226219-2 (Version None)
Quarter: 2011Q1

REPORT INFORMATION
  Report Type: 
  Country: None (occurrence: None)
  Receive Date: 20110114
  Receipt Date: 20110103
  Transmission Date: 20110831
  Serious: Yes (Hospitalization)
  Sender: FDA-Public Use
  Company Number: PHHY2011US00576

PATIENT
  Sex: Male

DRUGS (4)
  1. FLAGYL [Concomitant]
  2. GLEEVEC [Suspect]
     Indication: CHRONIC MYELOID LEUKAEMIA
     Dosage: 400 MG, UNK
     Route: 048
     Dates: start: 20101224
  3. GLEEVEC [Suspect]
     Dosage: DOSE REDUCED
  4. VANCOMYCIN [Concomitant]

REACTIONS (4)
  - CLOSTRIDIAL INFECTION [None]
  - DIARRHOEA [None]
  - BACTERIAL INFECTION [None]
  - PNEUMONIA [None]
